FAERS Safety Report 7649461-5 (Version None)
Quarter: 2011Q3

REPORT INFORMATION
  Report Type: 
  Country: None (occurrence: None)
  Receive Date: 20110802
  Receipt Date: 20110728
  Transmission Date: 20111222
  Serious: Yes (Hospitalization)
  Sender: FDA-Public Use
  Company Number: MY-JNJFOC-20110712290

PATIENT
  Sex: Male
  Weight: 61 kg

DRUGS (5)
  1. PALIPERIDONE [Suspect]
     Indication: SCHIZOPHRENIA
     Route: 030
     Dates: start: 20101227
  2. ARTANE [Concomitant]
     Indication: SALIVARY HYPERSECRETION
     Dates: start: 20110307
  3. LORAZEPAM [Concomitant]
     Indication: SALIVARY HYPERSECRETION
     Dates: start: 20110704, end: 20110708
  4. PALIPERIDONE [Suspect]
     Route: 030
     Dates: start: 20110602, end: 20110602
  5. PALIPERIDONE [Suspect]
     Route: 030
     Dates: start: 20110704

REACTIONS (1)
  - PSYCHOTIC DISORDER [None]
